FAERS Safety Report 5579602-5 (Version None)
Quarter: 2008Q1

REPORT INFORMATION
  Report Type: 
  Country: None (occurrence: None)
  Receive Date: 20080102
  Receipt Date: 20071221
  Transmission Date: 20080703
  Serious: Yes (Other)
  Sender: FDA-Public Use
  Company Number: NZ-RANBAXY-2007RR-11819

PATIENT

DRUGS (5)
  1. LANSOPRAZOLE [Suspect]
     Dosage: 30 MG, QD
  2. RANITIDINE 300 MG TABLETS [Suspect]
     Dosage: 300 MG, BID
     Route: 048
  3. CARBAMAZEPINE [Concomitant]
     Indication: EPILEPSY
  4. PROPRANOLOL [Concomitant]
     Indication: EPILEPSY
  5. QUETIAPINE FUMARATE [Concomitant]
     Indication: EPILEPSY
     Dosage: UNK

REACTIONS (1)
  - SKIN DISCOLOURATION [None]
